FAERS Safety Report 17291095 (Version 2)
Quarter: 2020Q2

REPORT INFORMATION
  Report Type: Report from Study
  Country: ES (occurrence: ES)
  Receive Date: 20200121
  Receipt Date: 20200605
  Transmission Date: 20200713
  Serious: Yes (Other)
  Sender: FDA-Public Use
  Company Number: ES-BAYER-2020-004343

PATIENT
  Age: 44 Year
  Sex: Female

DRUGS (1)
  1. KYLEENA [Suspect]
     Active Substance: LEVONORGESTREL
     Indication: CONTRACEPTION
     Dosage: 17.5 MCG/24HR, CONTINUOUSLY
     Route: 015
     Dates: start: 20191211, end: 20191216

REACTIONS (2)
  - Suspected product quality issue [None]
  - Device breakage [Recovered/Resolved]

NARRATIVE: CASE EVENT DATE: 20191215
